FAERS Safety Report 15082053 (Version 1)
Quarter: 2018Q2

REPORT INFORMATION
  Report Type: Spontaneous
  Country: IL (occurrence: IL)
  Receive Date: 20180628
  Receipt Date: 20180628
  Transmission Date: 20180711
  Serious: Yes (Life-Threatening, Hospitalization, Other)
  Sender: FDA-Public Use
  Company Number: IL-KALEO, INC.-2015SA182967

PATIENT
  Age: 37 Year
  Sex: Female

DRUGS (2)
  1. AUVI-Q [Suspect]
     Active Substance: EPINEPHRINE
     Indication: ANAPHYLACTIC REACTION
     Dosage: UNK, UNK
     Route: 042
  2. PROMETHAZINE [Concomitant]
     Active Substance: PROMETHAZINE\PROMETHAZINE HYDROCHLORIDE
     Indication: ANAPHYLACTIC REACTION

REACTIONS (14)
  - Oxygen saturation decreased [Recovered/Resolved]
  - Systolic dysfunction [Recovered/Resolved]
  - Metabolic acidosis [Recovered/Resolved]
  - Tachypnoea [Recovered/Resolved]
  - Hypotension [Recovered/Resolved]
  - Left ventricular dysfunction [Recovered/Resolved]
  - Electrocardiogram ST segment depression [Recovered/Resolved]
  - Electrocardiogram ST segment elevation [Recovered/Resolved]
  - Troponin I increased [Recovered/Resolved]
  - Ejection fraction decreased [Recovered/Resolved]
  - Cardiogenic shock [Recovered/Resolved]
  - Stress cardiomyopathy [Recovered/Resolved]
  - Ventricular hypokinesia [Recovered/Resolved]
  - Respiratory acidosis [Recovered/Resolved]
